FAERS Safety Report 9656629 (Version 1)
Quarter: 2013Q4

REPORT INFORMATION
  Report Type: Not Available
  Country: ES (occurrence: ES)
  Receive Date: 20131030
  Receipt Date: 20131030
  Transmission Date: 20140711
  Serious: Yes (Other)
  Sender: FDA-Public Use
  Company Number: ES-ASTELLAS-2013EU009162

PATIENT
  Age: 67 Year
  Sex: Male

DRUGS (1)
  1. VESICARE [Suspect]
     Indication: POLLAKIURIA
     Dosage: 5 MG, DAILY
     Route: 048
     Dates: start: 20130930, end: 20130930

REACTIONS (1)
  - Anticholinergic syndrome [Recovered/Resolved]
